FAERS Safety Report 13332165 (Version 3)
Quarter: 2017Q2

REPORT INFORMATION
  Report Type: Spontaneous
  Country: DE (occurrence: DE)
  Receive Date: 20170314
  Receipt Date: 20170411
  Transmission Date: 20170830
  Serious: Yes (Death, Other)
  Sender: FDA-Public Use
  Company Number: DE-009507513-1703DEU004898

PATIENT
  Age: 80 Year
  Sex: Female

DRUGS (1)
  1. KEYTRUDA [Suspect]
     Active Substance: PEMBROLIZUMAB
     Indication: HEAD AND NECK CANCER
     Dosage: 200 MG, UNK
     Route: 041

REACTIONS (5)
  - Off label use [Unknown]
  - Colitis ulcerative [Unknown]
  - Rash [Unknown]
  - Diarrhoea [Unknown]
  - Death [Fatal]
